FAERS Safety Report 7328105-6 (Version None)
Quarter: 2011Q1

REPORT INFORMATION
  Report Type: 
  Country: None (occurrence: None)
  Receive Date: 20110303
  Receipt Date: 20110205
  Transmission Date: 20110831
  Serious: No
  Sender: FDA-Public Use
  Company Number: US-B.I. PHARMACEUTICALS,INC./RIDGEFIELD-2011-BP-03807BP

PATIENT
  Age: 58 Year
  Sex: Male

DRUGS (6)
  1. METFORMIN HYDROCHLORIDE [Concomitant]
     Indication: GLUCOSE TOLERANCE IMPAIRED
  2. METOPROLOL [Concomitant]
     Indication: HYPERTENSION
  3. LANOXIN [Concomitant]
     Indication: ATRIAL FIBRILLATION
  4. LISINOPRIL [Concomitant]
     Indication: HYPERTENSION
  5. PRADAXA [Suspect]
     Indication: ATRIAL FIBRILLATION
     Dosage: 300 MG
     Route: 048
     Dates: start: 20110101
  6. LASIX [Concomitant]
     Indication: FLUID RETENTION

REACTIONS (1)
  - FALL [None]
